FAERS Safety Report 11883531 (Version 1)
Quarter: 2015Q4

REPORT INFORMATION
  Report Type: Report from Study
  Country: CA (occurrence: CA)
  Receive Date: 20151231
  Receipt Date: 20151231
  Transmission Date: 20160305
  Serious: Yes (Death, Hospitalization, Other)
  Sender: FDA-Public Use
  Company Number: PHHY2012CA007500

PATIENT
  Age: 64 Year
  Sex: Male

DRUGS (4)
  1. SANDOSTATIN LAR DEPOT [Suspect]
     Active Substance: OCTREOTIDE ACETATE
     Indication: NEUROENDOCRINE TUMOUR
     Dosage: 30 MG, QMO
     Route: 030
     Dates: start: 20120123, end: 20151214
  2. GINKGO BILOBA [Suspect]
     Active Substance: GINKGO
     Indication: MEMORY IMPAIRMENT
     Route: 065
  3. SANDOSTATIN [Suspect]
     Active Substance: OCTREOTIDE ACETATE
     Indication: NEUROENDOCRINE TUMOUR
     Dosage: UKN,TID
     Route: 058
     Dates: start: 20120110, end: 20120124
  4. AFINITOR [Suspect]
     Active Substance: EVEROLIMUS
     Indication: PRODUCT USED FOR UNKNOWN INDICATION
     Dosage: 10 MG, UNK
     Route: 065

REACTIONS (35)
  - Malignant neoplasm progression [Unknown]
  - Blood pressure increased [Unknown]
  - Stress [Unknown]
  - Weight decreased [Unknown]
  - Mass [Unknown]
  - Decreased appetite [Unknown]
  - Somnolence [Unknown]
  - Musculoskeletal pain [Unknown]
  - Abdominal distension [Recovering/Resolving]
  - Hypersensitivity [Recovering/Resolving]
  - Eating disorder [Recovering/Resolving]
  - Fatigue [Unknown]
  - Abdominal pain [Unknown]
  - Recurrent cancer [Unknown]
  - Neoplasm [Unknown]
  - Flatulence [Unknown]
  - Nausea [Unknown]
  - Vomiting [Unknown]
  - Ascites [Unknown]
  - Balance disorder [Unknown]
  - Disturbance in attention [Unknown]
  - Injection site mass [Recovered/Resolved]
  - Pain [Unknown]
  - Blood pressure systolic increased [Unknown]
  - Death [Fatal]
  - Haematoma [Recovering/Resolving]
  - Diarrhoea [Recovered/Resolved]
  - Faeces pale [Unknown]
  - Faeces soft [Unknown]
  - Pruritus [Unknown]
  - General physical health deterioration [Unknown]
  - Fall [Unknown]
  - Erythema [Recovering/Resolving]
  - Contusion [Unknown]
  - Chapped lips [Unknown]

NARRATIVE: CASE EVENT DATE: 20120224
